FAERS Safety Report 7690681-1 (Version None)
Quarter: 2011Q3

REPORT INFORMATION
  Report Type: 
  Country: None (occurrence: None)
  Receive Date: 20110818
  Receipt Date: 20110816
  Transmission Date: 20111222
  Serious: Yes (Death)
  Sender: FDA-Public Use
  Company Number: JP-PFIZER INC-2011179291

PATIENT
  Age: 64 Year
  Sex: Male
  Weight: 64.1 kg

DRUGS (6)
  1. GLYBURIDE [Concomitant]
  2. MICARDIS [Concomitant]
  3. SUTENT [Suspect]
     Indication: RENAL CELL CARCINOMA
     Dosage: 37.5 MG, 1X/DAY
     Route: 048
     Dates: start: 20110713, end: 20110714
  4. GLUFAST [Concomitant]
  5. ADALAT [Concomitant]
  6. INSULIN [Concomitant]

REACTIONS (4)
  - RENAL CELL CARCINOMA [None]
  - RESPIRATORY FAILURE [None]
  - DISEASE PROGRESSION [None]
  - CARDIAC ARREST [None]
